FAERS Safety Report 21375012 (Version 2)
Quarter: 2022Q3

REPORT INFORMATION
  Report Type: Report from Study
  Country: US (occurrence: US)
  Receive Date: 20220926
  Receipt Date: 20220930
  Transmission Date: 20221027
  Serious: Yes (Death, Other)
  Sender: FDA-Public Use
  Company Number: US-ABBVIE-4130486

PATIENT
  Sex: Female
  Weight: 86 kg

DRUGS (2)
  1. SYNTHROID [Suspect]
     Active Substance: LEVOTHYROXINE SODIUM
     Indication: Hypothyroidism
     Dosage: DOSE - 88 MICROGRAM?STRENGTH - 88 MICROGRAM
     Route: 048
  2. Covi-19 vaccine [Concomitant]
     Indication: COVID-19 immunisation

REACTIONS (1)
  - Breast cancer metastatic [Fatal]
